FAERS Safety Report 5670535-2 (Version None)
Quarter: 2008Q1

REPORT INFORMATION
  Report Type: 
  Country: None (occurrence: None)
  Receive Date: 20080313
  Receipt Date: 20080229
  Transmission Date: 20080703
  Serious: Yes (Other)
  Sender: FDA-Public Use
  Company Number: 2008SP004596

PATIENT
  Sex: Female

DRUGS (3)
  1. MIRALAX [Suspect]
     Indication: GASTROINTESTINAL MOTILITY DISORDER
     Dosage: PO
     Route: 048
     Dates: start: 20080223, end: 20080227
  2. LEXAPRO [Concomitant]
  3. GAS X [Concomitant]

REACTIONS (6)
  - ABDOMINAL DISTENSION [None]
  - OEDEMA MOUTH [None]
  - OESOPHAGEAL OEDEMA [None]
  - OESOPHAGITIS [None]
  - STOMATITIS [None]
  - SWOLLEN TONGUE [None]
